FAERS Safety Report 18410247 (Version 2)
Quarter: 2024Q3

REPORT INFORMATION
  Report Type: Spontaneous
  Country: US (occurrence: US)
  Receive Date: 20201021
  Receipt Date: 20240909
  Transmission Date: 20241016
  Serious: No
  Sender: KYOWA
  Company Number: US-KYOWAKIRIN-2020BKK016701

PATIENT

DRUGS (1)
  1. CRYSVITA [Suspect]
     Active Substance: BUROSUMAB-TWZA
     Indication: Hereditary hypophosphataemic rickets
     Dosage: UNK
     Route: 065

REACTIONS (2)
  - Menopause [Unknown]
  - Alopecia [Unknown]
